FAERS Safety Report 15144955 (Version 1)
Quarter: 2018Q3

REPORT INFORMATION
  Report Type: Spontaneous
  Country: GB (occurrence: GB)
  Receive Date: 20180713
  Receipt Date: 20180713
  Transmission Date: 20181010
  Serious: Yes (Hospitalization)
  Sender: FDA-Public Use
  Company Number: GB-ANIPHARMA-2018-UK-000071

PATIENT
  Age: 69 Year
  Sex: Female
  Weight: 62 kg

DRUGS (3)
  1. MIANSERIN [Suspect]
     Active Substance: MIANSERIN
     Dosage: 5 MG HS
     Route: 048
  2. HYDROCHLOROTHIAZIDE. [Concomitant]
     Active Substance: HYDROCHLOROTHIAZIDE
     Route: 048
  3. CANDESARTAN CILEXETIL. [Suspect]
     Active Substance: CANDESARTAN CILEXETIL
     Indication: HYPERTENSION
     Dosage: AT NIGHT. 32MG/12.5MG
     Route: 048

REACTIONS (4)
  - Headache [Unknown]
  - Vomiting [Unknown]
  - Diarrhoea [Unknown]
  - Hyponatraemia [Recovered/Resolved]
